FAERS Safety Report 7069863-8 (Version None)
Quarter: 2010Q4

REPORT INFORMATION
  Report Type: 
  Country: None (occurrence: None)
  Receive Date: 20101028
  Receipt Date: 20100702
  Transmission Date: 20110411
  Serious: No
  Sender: FDA-Public Use
  Company Number: US-WYE-H16009610

PATIENT
  Sex: Male
  Weight: 73.55 kg

DRUGS (10)
  1. PROTONIX [Suspect]
     Indication: GASTROOESOPHAGEAL REFLUX DISEASE
     Dates: start: 20090101
  2. LORAZEPAM [Concomitant]
  3. LUNESTA [Concomitant]
  4. FLOVENT [Concomitant]
  5. CRESTOR [Concomitant]
  6. NORVASC [Concomitant]
  7. PLAVIX [Concomitant]
  8. NASONEX [Concomitant]
  9. NORTRIPTYLINE [Concomitant]
  10. LEXAPRO [Concomitant]

REACTIONS (3)
  - CONDITION AGGRAVATED [None]
  - CONSTIPATION [None]
  - FLATULENCE [None]
